FAERS Safety Report 23936629 (Version 2)
Quarter: 2024Q2

REPORT INFORMATION
  Report Type: Spontaneous
  Country: US (occurrence: US)
  Receive Date: 20240604
  Receipt Date: 20240619
  Transmission Date: 20240716
  Serious: No
  Sender: FDA-Public Use
  Company Number: US-SANOFI-02067450

PATIENT
  Sex: Female

DRUGS (1)
  1. DUPIXENT [Suspect]
     Active Substance: DUPILUMAB
     Indication: Eosinophilic oesophagitis
     Dosage: 300 MG, QW

REACTIONS (4)
  - Injection site rash [Unknown]
  - Injection site swelling [Unknown]
  - Injection site pruritus [Unknown]
  - Conjunctivitis [Unknown]

NARRATIVE: CASE EVENT DATE: 20240601
